FAERS Safety Report 6264817-3 (Version None)
Quarter: 2009Q3

REPORT INFORMATION
  Report Type: 
  Country: None (occurrence: None)
  Receive Date: 20090710
  Receipt Date: 20090630
  Transmission Date: 20100115
  Serious: Yes (Life-Threatening, Hospitalization)
  Sender: FDA-Public Use
  Company Number: IN-JNJCH-2009018531

PATIENT
  Age: 30 Year
  Sex: Female

DRUGS (1)
  1. CETIRIZINE [Suspect]
     Indication: IDIOPATHIC URTICARIA
     Dosage: TEXT:10 MG
     Route: 048

REACTIONS (1)
  - ANAPHYLACTIC SHOCK [None]
